FAERS Safety Report 4545177-2 (Version None)
Quarter: 2004Q4

REPORT INFORMATION
  Report Type: 
  Country: None (occurrence: None)
  Receive Date: 20041222
  Receipt Date: 20041022
  Transmission Date: 20050328
  Serious: Yes (Hospitalization)
  Sender: FDA-Public Use
  Company Number: USA040977247

PATIENT
  Age: 74 Year
  Sex: Male
  Weight: 99 kg

DRUGS (2)
  1. HUMULIN N [Suspect]
     Indication: DIABETES MELLITUS
     Dates: start: 19871201, end: 20031215
  2. HUMALOG [Suspect]
     Indication: DIABETES MELLITUS
     Dosage: 39 U DAY
     Dates: start: 20031215

REACTIONS (7)
  - BLOOD GLUCOSE DECREASED [None]
  - BLOOD GLUCOSE INCREASED [None]
  - COLD SWEAT [None]
  - DRUG INEFFECTIVE [None]
  - HIP ARTHROPLASTY [None]
  - TREMOR [None]
  - VISION BLURRED [None]
